FAERS Safety Report 23907921 (Version 2)
Quarter: 2024Q2

REPORT INFORMATION
  Report Type: Spontaneous
  Country: US (occurrence: US)
  Receive Date: 20240528
  Receipt Date: 20240530
  Transmission Date: 20240716
  Serious: Yes (Hospitalization, Other)
  Sender: FDA-Public Use
  Company Number: US-ROCHE-3567071

PATIENT
  Age: 31 Year
  Sex: Female

DRUGS (3)
  1. CAPECITABINE [Suspect]
     Active Substance: CAPECITABINE
     Indication: Colorectal adenocarcinoma
     Dosage: ONGOING: NO?3-0-2, TWO WEEKS ON, ONE WEEK OFF, 6 CYCLES
     Route: 048
     Dates: start: 202301, end: 202305
  2. BEVACIZUMAB [Suspect]
     Active Substance: BEVACIZUMAB
     Indication: Colorectal adenocarcinoma
     Dosage: ONGOING: YES?4 CYCLES MAY/2023-OCTOBER/ 2023,
     Dates: start: 20230519
  3. BEVACIZUMAB [Suspect]
     Active Substance: BEVACIZUMAB
     Indication: Colorectal adenocarcinoma
     Dates: start: 202401, end: 202403

REACTIONS (11)
  - Disease progression [Not Recovered/Not Resolved]
  - Metastases to liver [Not Recovered/Not Resolved]
  - Pyrexia [Unknown]
  - Chest pain [Unknown]
  - Benign lung neoplasm [Unknown]
  - Metastases to lymph nodes [Unknown]
  - Colon cancer [Unknown]
  - Lymphadenitis [Unknown]
  - Hepatic lesion [Unknown]
  - Retroperitoneal lymphadenopathy [Unknown]
  - Gastrointestinal disorder [Unknown]

NARRATIVE: CASE EVENT DATE: 20230501
